FAERS Safety Report 9504802 (Version 1)
Quarter: 2013Q1

REPORT INFORMATION
  Report Type: Spontaneous
  Country: FR (occurrence: None)
  Receive Date: 20130225
  Receipt Date: 20130225
  Transmission Date: 20140127
  Serious: Yes (Hospitalization)
  Sender: FDA-Public Use
  Company Number: 2012-270

PATIENT
  Age: 57 Year
  Sex: Male

DRUGS (4)
  1. PRIALT (ZICONOTIDE) INTRATHECAL INFUSION [Suspect]
     Indication: PAIN
     Route: 037
     Dates: start: 20110701, end: 20110722
  2. MORPHINE SULFATE (MORPHINE SULFATE) INJECTION [Suspect]
     Indication: PAIN
     Route: 037
     Dates: start: 20110701, end: 20111012
  3. NAROPEINE (ROPIVACAINE HYDROCHLORIDE) INJECTION [Suspect]
     Indication: PAIN
     Route: 037
     Dates: start: 20110701, end: 20111221
  4. CLONIDINE HCL (CLONIDINE HYDROCHLORIDE) INJECTION [Suspect]
     Indication: PAIN
     Route: 037
     Dates: start: 20110701, end: 20111221

REACTIONS (2)
  - Anxiety [None]
  - Depression [None]
